FAERS Safety Report 12671299 (Version 1)
Quarter: 2016Q3

REPORT INFORMATION
  Report Type: Spontaneous
  Country: US (occurrence: US)
  Receive Date: 20160822
  Receipt Date: 20160822
  Transmission Date: 20161109
  Serious: No
  Sender: FDA-Public Use
  Company Number: US-TEVA-640672USA

PATIENT
  Age: 73 Year
  Sex: Female
  Weight: 68.03 kg

DRUGS (1)
  1. FEXOFENADINE [Suspect]
     Active Substance: FEXOFENADINE\FEXOFENADINE HYDROCHLORIDE
     Indication: PERENNIAL ALLERGY
     Dosage: 180 MILLIGRAM DAILY;
     Route: 048
     Dates: start: 20160206, end: 20160229

REACTIONS (4)
  - Pain in extremity [Not Recovered/Not Resolved]
  - Muscle spasms [Recovered/Resolved]
  - Drug administered to patient of inappropriate age [Unknown]
  - Vitamin D increased [Unknown]

NARRATIVE: CASE EVENT DATE: 20160208
